FAERS Safety Report 25548591 (Version 2)
Quarter: 2025Q3

REPORT INFORMATION
  Report Type: Spontaneous
  Country: US (occurrence: US)
  Receive Date: 20250714
  Receipt Date: 20250821
  Transmission Date: 20251021
  Serious: Yes (Other)
  Sender: PFIZER
  Company Number: US-PFIZER INC-202500139536

PATIENT
  Age: 28 Year
  Sex: Female

DRUGS (1)
  1. VELSIPITY [Suspect]
     Active Substance: ETRASIMOD ARGININE
     Dosage: 2 MG TABLET TAKE 1 TABLET BY MOUTH EVERY MORNING
     Route: 048
     Dates: start: 20241207

REACTIONS (6)
  - Colitis [Unknown]
  - Dizziness [Unknown]
  - Dyspepsia [Unknown]
  - Agitation [Unknown]
  - Anxiety [Unknown]
  - Palpitations [Unknown]

NARRATIVE: CASE EVENT DATE: 20241207
